FAERS Safety Report 21000540 (Version 4)
Quarter: 2022Q3

REPORT INFORMATION
  Report Type: Report from Study
  Country: HK (occurrence: HK)
  Receive Date: 20220623
  Receipt Date: 20220906
  Transmission Date: 20221027
  Serious: Yes (Hospitalization)
  Sender: FDA-Public Use
  Company Number: HK-BIOGEN-2022BI01132740

PATIENT
  Age: 29 Year
  Sex: Female
  Weight: 63.9 kg

DRUGS (3)
  1. DIROXIMEL FUMARATE [Suspect]
     Active Substance: DIROXIMEL FUMARATE
     Indication: Clinical trial participant
     Dosage: DAY 1-4
     Route: 050
     Dates: start: 20220609, end: 20220612
  2. DIROXIMEL FUMARATE [Suspect]
     Active Substance: DIROXIMEL FUMARATE
     Dosage: DAY 5
     Route: 050
     Dates: start: 20220613, end: 20220613
  3. ACETAMINOPHEN [Concomitant]
     Active Substance: ACETAMINOPHEN
     Indication: Pyrexia
     Route: 050
     Dates: start: 20220613, end: 20220617

REACTIONS (1)
  - Leukopenia [Recovered/Resolved]

NARRATIVE: CASE EVENT DATE: 20220615
